FAERS Safety Report 7406486-2 (Version None)
Quarter: 2011Q2

REPORT INFORMATION
  Report Type: 
  Country: None (occurrence: None)
  Receive Date: 20110411
  Receipt Date: 20110328
  Transmission Date: 20111010
  Serious: Yes (Death, Hospitalization)
  Sender: FDA-Public Use
  Company Number: US-CELGENEUS-163-20785-11022176

PATIENT
  Sex: Male
  Weight: 80.7 kg

DRUGS (1)
  1. THALOMID [Suspect]
     Dosage: 50 MILLIGRAM
     Route: 048
     Dates: start: 20090205, end: 20110116

REACTIONS (2)
  - FALL [None]
  - PNEUMONIA [None]
